FAERS Safety Report 23730226 (Version 1)
Quarter: 2024Q2

REPORT INFORMATION
  Report Type: Report from Study
  Country: US (occurrence: None)
  Receive Date: 20240411
  Receipt Date: 20240411
  Transmission Date: 20240715
  Serious: Yes (Death, Other)
  Sender: FDA-Public Use
  Company Number: US-ADIENNEP-2024AD000307

PATIENT
  Age: 14 Year

DRUGS (6)
  1. THIOTEPA [Suspect]
     Active Substance: THIOTEPA
     Indication: Stem cell transplant
  2. MELPHALAN [Suspect]
     Active Substance: MELPHALAN
     Indication: Stem cell transplant
  3. CAMPATH [Suspect]
     Active Substance: ALEMTUZUMAB
     Indication: Stem cell transplant
  4. FLUDARABINE [Suspect]
     Active Substance: FLUDARABINE PHOSPHATE
     Indication: Stem cell transplant
  5. CYCLOSPORINE [Suspect]
     Active Substance: CYCLOSPORINE
     Indication: Prophylaxis against graft versus host disease
  6. MYCOPHENOLATE MOFETIL [Suspect]
     Active Substance: MYCOPHENOLATE MOFETIL
     Indication: Prophylaxis against graft versus host disease

REACTIONS (8)
  - Thrombotic microangiopathy [Fatal]
  - Respiratory failure [Not Recovered/Not Resolved]
  - Acute graft versus host disease in intestine [Fatal]
  - Pulmonary alveolar haemorrhage [Fatal]
  - Renal impairment [Not Recovered/Not Resolved]
  - Viraemia [Unknown]
  - Human herpesvirus 6 infection [Unknown]
  - Polyomavirus viraemia [Unknown]
